FAERS Safety Report 21694187 (Version 3)
Quarter: 2023Q2

REPORT INFORMATION
  Report Type: Spontaneous
  Country: US (occurrence: US)
  Receive Date: 20221207
  Receipt Date: 20230515
  Transmission Date: 20230722
  Serious: Yes (Other)
  Sender: FDA-Public Use
  Company Number: US-TEVA-2022-US-2832458

PATIENT
  Sex: Male

DRUGS (1)
  1. BUPRENORPHINE [Suspect]
     Active Substance: BUPRENORPHINE
     Indication: Nerve compression
     Dosage: 20 MCG / HR
     Route: 062

REACTIONS (7)
  - Adrenal disorder [Unknown]
  - Quality of life decreased [Unknown]
  - Withdrawal syndrome [Unknown]
  - Product packaging quantity issue [Unknown]
  - Product adhesion issue [Unknown]
  - Pain [Unknown]
  - Drug ineffective [Unknown]

NARRATIVE: CASE EVENT DATE: 20221101
